FAERS Safety Report 22971513 (Version 3)
Quarter: 2023Q4

REPORT INFORMATION
  Report Type: Report from Study
  Country: DE (occurrence: DE)
  Receive Date: 20230922
  Receipt Date: 20231121
  Transmission Date: 20240110
  Serious: Yes (Hospitalization)
  Sender: FDA-Public Use
  Company Number: DE-TEVA-2023-DE-2928181

PATIENT
  Age: 44 Year
  Sex: Male
  Weight: 89 kg

DRUGS (23)
  1. LENALIDOMIDE [Suspect]
     Active Substance: LENALIDOMIDE
     Indication: Follicular lymphoma
     Dosage: D1-21, EVERY 1 DAYS
     Route: 048
     Dates: start: 20230814
  2. EPCORITAMAB [Suspect]
     Active Substance: EPCORITAMAB
     Indication: Follicular lymphoma
     Dosage: 0.16 MG PRIMING DOSE; C1, D1, TOTAL; 0.8 MG INTERMEDIATE DOSE; C1, D8, TOTAL; 48 MG FULL?DOSE; C1, D
     Route: 058
     Dates: start: 20230814, end: 20230814
  3. EPCORITAMAB [Suspect]
     Active Substance: EPCORITAMAB
     Dosage: 0.16 MG PRIMING DOSE; C1, D1, TOTAL; 0.8 MG INTERMEDIATE DOSE; C1, D8, TOTAL; 48 MG FULL?DOSE; C1, D
     Route: 058
     Dates: start: 20230821, end: 20230821
  4. EPCORITAMAB [Suspect]
     Active Substance: EPCORITAMAB
     Dosage: 0.16 MG PRIMING DOSE; C1, D1, TOTAL; 0.8 MG INTERMEDIATE DOSE; C1, D8, TOTAL; 48 MG FULL?DOSE; C1, D
     Route: 058
     Dates: start: 20230828, end: 20230828
  5. EPCORITAMAB [Suspect]
     Active Substance: EPCORITAMAB
     Dosage: 0.16 MG PRIMING DOSE; C1, D1, TOTAL; 0.8 MG INTERMEDIATE DOSE; C1, D8, TOTAL; 48 MG FULL?DOSE; C1, D
     Route: 058
     Dates: start: 20230913, end: 20230913
  6. RITUXIMAB [Suspect]
     Active Substance: RITUXIMAB
     Indication: Follicular lymphoma
     Dosage: 810 MG C1 DAY 1, 8, 15 AND 22, EVERY 1 WEEKS
     Route: 042
     Dates: start: 20230814
  7. DULOXETINE HYDROCHLORIDE [Concomitant]
     Active Substance: DULOXETINE HYDROCHLORIDE
     Indication: Depression
     Dosage: 90 MILLIGRAM DAILY;
     Dates: start: 201909
  8. INTRATECT [Concomitant]
     Active Substance: HUMAN IMMUNOGLOBULIN G
     Indication: Immunoglobulins decreased
     Dosage: 15 G, EVERY 4 WEEKS
     Dates: start: 202110
  9. ACYCLOVIR [Concomitant]
     Active Substance: ACYCLOVIR
     Indication: Infection prophylaxis
     Dosage: 400 MILLIGRAM DAILY;
     Dates: start: 20230815
  10. ASPIRIN [Concomitant]
     Active Substance: ASPIRIN
     Indication: Thrombosis prophylaxis
     Dosage: 100 MILLIGRAM DAILY;
     Dates: start: 20230815, end: 20230901
  11. HYDROCHLOROTHIAZIDE [Concomitant]
     Active Substance: HYDROCHLOROTHIAZIDE
     Indication: Prophylaxis
     Dosage: 25 MG, 4/DAYS
     Dates: start: 20230807, end: 20230808
  12. HYDROCHLOROTHIAZIDE [Concomitant]
     Active Substance: HYDROCHLOROTHIAZIDE
     Indication: Prophylaxis
  13. HYDROMORPHONE [Concomitant]
     Active Substance: HYDROMORPHONE
     Indication: Pain
     Dosage: 2.6 MG, 4/DAY
     Dates: start: 20230807, end: 20230808
  14. HYDROMORPHONE [Concomitant]
     Active Substance: HYDROMORPHONE
     Dosage: 2 MG, 3/DAYS
     Dates: start: 202301
  15. PANTOPRAZOLE SODIUM [Concomitant]
     Active Substance: PANTOPRAZOLE SODIUM
     Indication: Prophylaxis
     Dosage: 40 MG, 4/DAYS
     Dates: start: 20230807, end: 20230808
  16. ACETAMINOPHEN [Concomitant]
     Active Substance: ACETAMINOPHEN
     Indication: Prophylaxis
     Dosage: 500 MG, CYCLICAL
     Dates: start: 20230807
  17. ACETAMINOPHEN [Concomitant]
     Active Substance: ACETAMINOPHEN
     Indication: Premedication
  18. ALLOPURINOL [Concomitant]
     Active Substance: ALLOPURINOL
     Indication: Prophylaxis
     Dosage: 300 MILLIGRAM DAILY;
     Dates: start: 20230814, end: 20230817
  19. ALLOPURINOL [Concomitant]
     Active Substance: ALLOPURINOL
     Indication: Premedication
  20. CLEMASTINE FUMARATE [Concomitant]
     Active Substance: CLEMASTINE FUMARATE
     Indication: Premedication
     Dosage: 2 MG, CYCLICA
     Dates: start: 20230814
  21. PREDNISOLONE [Concomitant]
     Active Substance: PREDNISOLONE
     Indication: Chemotherapy cytokine prophylaxis
     Dosage: 100 MG, CYCLICAL
     Dates: start: 20230814, end: 20230817
  22. PREDNISOLONE [Concomitant]
     Active Substance: PREDNISOLONE
     Indication: Premedication
  23. AMLODIPINE BESYLATE [Concomitant]
     Active Substance: AMLODIPINE BESYLATE
     Indication: Hypertension

REACTIONS (1)
  - Tumour pain [Recovered/Resolved]

NARRATIVE: CASE EVENT DATE: 20230901
